FAERS Safety Report 4801164-8 (Version None)
Quarter: 2005Q4

REPORT INFORMATION
  Report Type: 
  Country: None (occurrence: None)
  Receive Date: 20051011
  Receipt Date: 20050925
  Transmission Date: 20060501
  Serious: Yes (Hospitalization)
  Sender: FDA-Public Use
  Company Number: CHNY2005CA01830

PATIENT
  Age: 39 Year
  Sex: Female

DRUGS (1)
  1. TRANSDERM VOYAGER [Suspect]
     Indication: MOTION SICKNESS
     Dosage: 1.5 MG, QD, TRANSDERMAL
     Route: 062
     Dates: start: 20050923, end: 20050924

REACTIONS (4)
  - BLINDNESS UNILATERAL [None]
  - EYE PAIN [None]
  - MYDRIASIS [None]
  - VISION BLURRED [None]
